FAERS Safety Report 10268966 (Version 1)
Quarter: 2014Q2

REPORT INFORMATION
  Report Type: Spontaneous
  Country: GB (occurrence: GB)
  Receive Date: 20140630
  Receipt Date: 20140630
  Transmission Date: 20141212
  Serious: Yes (Hospitalization)
  Sender: FDA-Public Use
  Company Number: GB-ACTAVIS-2014-13878

PATIENT
  Sex: Male

DRUGS (2)
  1. ACYCLOVIR (UNKNOWN) [Suspect]
     Indication: PRODUCT USED FOR UNKNOWN INDICATION
     Dosage: 200 MG, UNKNOWN
     Route: 042
  2. SODIUM CHLORIDE (UNKNOWN) [Suspect]
     Indication: MEDICATION DILUTION
     Dosage: UNK, 9%
     Route: 065

REACTIONS (1)
  - Extravasation [Recovered/Resolved]
